FAERS Safety Report 8849329 (Version 1)
Quarter: 2012Q4

REPORT INFORMATION
  Report Type: Spontaneous
  Country: US (occurrence: None)
  Receive Date: 20121017
  Receipt Date: 20121017
  Transmission Date: 20130627
  Serious: Yes (Hospitalization)
  Sender: FDA-Public Use
  Company Number: None

PATIENT
  Age: 59 Year
  Sex: Female

DRUGS (7)
  1. DOCETAXEL [Suspect]
     Indication: DUCTAL BREAST CARCINOMA STAGE II
     Dosage: 75mg/m2, over 60 minues, IV Drip
     Route: 041
     Dates: start: 20111125
  2. CITALOPRAM [Concomitant]
  3. GLINEPIRIDE [Concomitant]
  4. LEVOTHYROXINE [Concomitant]
  5. LOVASTATIN [Concomitant]
  6. METHYLPHENIDATE [Concomitant]
  7. METOPROLOL [Concomitant]

REACTIONS (3)
  - Skin reaction [None]
  - Pruritus [None]
  - Erythema [None]
